FAERS Safety Report 5481149-1 (Version None)
Quarter: 2007Q4

REPORT INFORMATION
  Report Type: 
  Country: None (occurrence: None)
  Receive Date: 20071004
  Receipt Date: 20070919
  Transmission Date: 20080405
  Serious: Yes (Hospitalization)
  Sender: FDA-Public Use
  Company Number: 002#1#2007-00198

PATIENT
  Age: 61 Year
  Sex: Male

DRUGS (2)
  1. GLYCOLAX [Suspect]
     Indication: COLONOSCOPY
     Dosage: 17G,,ORAL
     Route: 048
     Dates: start: 20070913, end: 20070913
  2. ASPIRIN [Concomitant]

REACTIONS (6)
  - CHILLS [None]
  - DIARRHOEA [None]
  - DIZZINESS [None]
  - HYPERHIDROSIS [None]
  - URINE OUTPUT DECREASED [None]
  - VOMITING [None]
